FAERS Safety Report 7870064-1 (Version None)
Quarter: 2011Q4

REPORT INFORMATION
  Report Type: 
  Country: None (occurrence: None)
  Receive Date: 20111027
  Receipt Date: 20111017
  Transmission Date: 20120403
  Serious: Yes (Other)
  Sender: FDA-Public Use
  Company Number: S08-USA-00249-01

PATIENT
  Age: 24 Year
  Sex: Male

DRUGS (3)
  1. SERTRALINE HYDROCHLORIDE [Suspect]
  2. HYPERICUM (HYPERICUM) [Suspect]
     Dosage: 900 MG (900 MG, 1 IN 1 D)
  3. LEXAPRO [Suspect]
     Indication: ANXIETY
     Dosage: 20 MG (10 MG, 2 IN 1 D), ORAL
     Route: 048
     Dates: start: 20050203

REACTIONS (18)
  - FEELING OF DESPAIR [None]
  - SUICIDE ATTEMPT [None]
  - EJACULATION FAILURE [None]
  - PRODUCT QUALITY ISSUE [None]
  - AGGRESSION [None]
  - ANXIETY [None]
  - DISCOMFORT [None]
  - IRRITABILITY [None]
  - PARANOIA [None]
  - PERSONALITY CHANGE [None]
  - AKATHISIA [None]
  - PALPITATIONS [None]
  - FEELING ABNORMAL [None]
  - NERVOUSNESS [None]
  - MANIA [None]
  - DEPRESSION [None]
  - AGITATION [None]
  - IMPULSIVE BEHAVIOUR [None]
